FAERS Safety Report 5228367-5 (Version None)
Quarter: 2007Q1

REPORT INFORMATION
  Report Type: 
  Country: None (occurrence: None)
  Receive Date: 20070131
  Receipt Date: 20070131
  Transmission Date: 20070707
  Serious: Yes (Other)
  Sender: FDA-Public Use
  Company Number: None

PATIENT
  Sex: Female
  Weight: 84.369 kg

DRUGS (4)
  1. PAXIL [Suspect]
     Indication: DEPRESSION
     Dates: start: 19960101, end: 20060101
  2. EFFECTOR [Suspect]
  3. LEXAPRO [Suspect]
  4. CYMBALTA [Suspect]

REACTIONS (1)
  - DRUG INEFFECTIVE [None]
